FAERS Safety Report 4964842-6 (Version None)
Quarter: 2006Q2

REPORT INFORMATION
  Report Type: 
  Country: None (occurrence: None)
  Receive Date: 20060406
  Receipt Date: 20060309
  Transmission Date: 20061013
  Serious: Yes (Death, Life-Threatening)
  Sender: FDA-Public Use
  Company Number: JP-BRISTOL-MYERS SQUIBB COMPANY-13317458

PATIENT
  Age: 58 Year
  Sex: Male

DRUGS (9)
  1. ENDOXAN [Suspect]
     Indication: DIFFUSE LARGE B-CELL LYMPHOMA
     Route: 041
     Dates: start: 20011124, end: 20011124
  2. VEPESID [Concomitant]
     Dates: start: 20011120, end: 20011124
  3. PARAPLATIN [Concomitant]
     Dates: start: 20011120, end: 20011126
  4. AMIKACIN SULFATE [Concomitant]
     Dates: start: 20011127, end: 20011127
  5. KYTRIL [Concomitant]
     Dates: start: 20011120, end: 20011125
  6. DECADRON SRC [Concomitant]
     Dates: start: 20011120, end: 20011124
  7. GASTER [Concomitant]
     Dates: start: 20011120, end: 20011126
  8. MODACIN [Concomitant]
     Dates: start: 20011127, end: 20011127
  9. UROMITEXAN [Concomitant]
     Dates: start: 20011120, end: 20011124

REACTIONS (6)
  - ALANINE AMINOTRANSFERASE INCREASED [None]
  - ASPARTATE AMINOTRANSFERASE INCREASED [None]
  - BLOOD LACTATE DEHYDROGENASE INCREASED [None]
  - CARDIAC FAILURE ACUTE [None]
  - CARDIOGENIC SHOCK [None]
  - MYOCARDIAL HAEMORRHAGE [None]
